FAERS Safety Report 6183978-8 (Version None)
Quarter: 2009Q2

REPORT INFORMATION
  Report Type: 
  Country: None (occurrence: None)
  Receive Date: 20090506
  Receipt Date: 20090506
  Transmission Date: 20091009
  Serious: Yes (Death, Hospitalization)
  Sender: FDA-Public Use
  Company Number: None

PATIENT
  Age: 72 Year
  Sex: Female
  Weight: 52 kg

DRUGS (23)
  1. DASATINIB [Suspect]
     Indication: NON-SMALL CELL LUNG CANCER
     Dosage: 140 MG PO DAILY
     Dates: start: 20090414, end: 20090423
  2. SYNTHROID [Concomitant]
  3. XOLOFT [Concomitant]
  4. BONIVA [Concomitant]
  5. LYRICA [Concomitant]
  6. TOPROL-XL [Concomitant]
  7. CELEBREX [Concomitant]
  8. LOVENOX [Concomitant]
  9. BENZONATATE [Concomitant]
  10. MULTI-VITAMIN [Concomitant]
  11. MAITIKE [Concomitant]
  12. ESSIAC [Concomitant]
  13. FISH OIL [Concomitant]
  14. VITB6 [Concomitant]
  15. VITB1 [Concomitant]
  16. DOCUSATE [Concomitant]
  17. VITD3 [Concomitant]
  18. GLUCOSAMINE [Concomitant]
  19. GUAIFENESIN [Concomitant]
  20. LUTEIN [Concomitant]
  21. SENNA [Concomitant]
  22. VICODIN [Concomitant]
  23. MEGACE [Concomitant]

REACTIONS (14)
  - ABDOMINAL PAIN UPPER [None]
  - BLOOD CREATININE INCREASED [None]
  - BLOOD UREA INCREASED [None]
  - COLLAPSE OF LUNG [None]
  - DEHYDRATION [None]
  - DYSPHAGIA [None]
  - DYSPNOEA [None]
  - GENERAL PHYSICAL HEALTH DETERIORATION [None]
  - METASTASES TO LIVER [None]
  - PLEURAL EFFUSION [None]
  - PNEUMONIA [None]
  - SPEECH DISORDER [None]
  - TRANSAMINASES INCREASED [None]
  - WHITE BLOOD CELL COUNT INCREASED [None]
